FAERS Safety Report 6038913-X (Version None)
Quarter: 2009Q1

REPORT INFORMATION
  Report Type: 
  Country: None (occurrence: None)
  Receive Date: 20090115
  Receipt Date: 20090113
  Transmission Date: 20090719
  Serious: Yes (Life-Threatening, Hospitalization)
  Sender: FDA-Public Use
  Company Number: US-JNJFOC-20090102378

PATIENT
  Age: 40 Year
  Sex: Male

DRUGS (3)
  1. TRAMADOL HCL [Suspect]
     Indication: SUICIDE ATTEMPT
  2. TRAMADOL HCL [Suspect]
     Indication: ARTHRALGIA
  3. ALCOHOL [Suspect]
     Indication: ALCOHOL ABUSE
     Route: 065

REACTIONS (5)
  - CONVULSION [None]
  - INTENTIONAL OVERDOSE [None]
  - LETHARGY [None]
  - SUICIDE ATTEMPT [None]
  - WITHDRAWAL SYNDROME [None]
